FAERS Safety Report 14581392 (Version 1)
Quarter: 2018Q1

REPORT INFORMATION
  Report Type: Spontaneous
  Country: DK (occurrence: DK)
  Receive Date: 20180228
  Receipt Date: 20180228
  Transmission Date: 20180509
  Serious: Yes (Other)
  Sender: FDA-Public Use
  Company Number: DK-CIPLA LTD.-2018DK06266

PATIENT

DRUGS (1)
  1. SERTRALINE [Suspect]
     Active Substance: SERTRALINE HYDROCHLORIDE
     Indication: DEPRESSION
     Dosage: 50 MG, DAILY
     Route: 048
     Dates: start: 20150301, end: 20160101

REACTIONS (2)
  - Spermatozoa progressive motility decreased [Recovered/Resolved]
  - Infertility male [Unknown]

NARRATIVE: CASE EVENT DATE: 20150301
